FAERS Safety Report 8381927-5 (Version None)
Quarter: 2012Q2

REPORT INFORMATION
  Report Type: 
  Country: None (occurrence: None)
  Receive Date: 20120524
  Receipt Date: 20120509
  Transmission Date: 20120825
  Serious: Yes (Other)
  Sender: FDA-Public Use
  Company Number: CA-JNJFOC-20120509793

PATIENT
  Sex: Male
  Weight: 61.4 kg

DRUGS (3)
  1. REMICADE [Suspect]
     Indication: CROHN'S DISEASE
     Route: 042
     Dates: start: 20110607
  2. REMICADE [Suspect]
     Dosage: 8TH INFUSION
     Route: 042
     Dates: start: 20120509
  3. REMICADE [Suspect]
     Route: 042

REACTIONS (2)
  - PALPITATIONS [None]
  - SWOLLEN TONGUE [None]
